FAERS Safety Report 22936812 (Version 5)
Quarter: 2023Q4

REPORT INFORMATION
  Report Type: Spontaneous
  Country: JP (occurrence: JP)
  Receive Date: 20230912
  Receipt Date: 20231024
  Transmission Date: 20240109
  Serious: Yes (Other)
  Sender: FDA-Public Use
  Company Number: JP-GSKNCCC-Case-01806099_AE-74974

PATIENT

DRUGS (15)
  1. LAMICTAL [Suspect]
     Active Substance: LAMOTRIGINE
     Indication: Epilepsy
     Dosage: 100 MG, BID, AFTER BREAKFAST AND DINNER
     Dates: start: 20230303
  2. LAMICTAL [Suspect]
     Active Substance: LAMOTRIGINE
     Dosage: 50 MG, BID, AFTER BREAKFAST AND DINNER
     Dates: start: 20230805
  3. LAMICTAL [Suspect]
     Active Substance: LAMOTRIGINE
     Dosage: 25 MG, BID, AFTER BREAKFAST AND DINNER
     Dates: start: 20230812
  4. LAMICTAL [Suspect]
     Active Substance: LAMOTRIGINE
     Dosage: 25 MG, 1D, AFTER DINNER
     Dates: start: 20230907
  5. LAMICTAL [Suspect]
     Active Substance: LAMOTRIGINE
     Dosage: 5000 MG
     Dates: end: 20230908
  6. LAMICTAL [Suspect]
     Active Substance: LAMOTRIGINE
     Dosage: 25 MG, 1D
     Dates: start: 20230920
  7. VALPROATE SODIUM [Concomitant]
     Active Substance: VALPROATE SODIUM
     Indication: Epilepsy
     Dosage: 100 MG, BID, AFTER BREAKFAST AND DINNER
     Dates: start: 20230303
  8. VALPROATE SODIUM [Concomitant]
     Active Substance: VALPROATE SODIUM
     Dosage: 100 MG, 1D, AFTER DINNER
  9. VIMPAT [Concomitant]
     Active Substance: LACOSAMIDE
     Dosage: 50 MG (AFTER BREAKFAST), 100 MG (AFTER DINNER), BID
     Dates: start: 20230303
  10. VIMPAT [Concomitant]
     Active Substance: LACOSAMIDE
     Dosage: 100 MG, BID, AFTER BREAKFAST AND DINNER
     Dates: start: 20230727
  11. VIMPAT [Concomitant]
     Active Substance: LACOSAMIDE
     Dosage: 150 MG, BID, AFTER BREAKFAST AND DINNER
     Dates: start: 20230804
  12. VIMPAT [Concomitant]
     Active Substance: LACOSAMIDE
     Dosage: 100 MG, BID, AFTER BREAKFAST AND DINNER
     Dates: start: 20230901
  13. DIENOGEST [Concomitant]
     Active Substance: DIENOGEST
     Dosage: 0.5 MG, BID, AFTER BREAKFAST AND DINNER
     Dates: start: 20230303
  14. BETAHISTINE MESILATE TABLET [Concomitant]
     Indication: Dizziness
     Dosage: 1 DF, AT THE TIME OF DIZZINESS, 10-DOSE SUPPLY, UP TO THRICE DAILY
     Dates: start: 20230721
  15. MYSTAN TABLET [Concomitant]
     Dosage: 5 MG, BID, AFTER BREAKFAST AND DINNER
     Dates: start: 20230727

REACTIONS (2)
  - Suicide attempt [Unknown]
  - Intentional overdose [Unknown]
